FAERS Safety Report 21988621 (Version 1)
Quarter: 2023Q1

REPORT INFORMATION
  Report Type: Spontaneous
  Country: DE (occurrence: DE)
  Receive Date: 20230214
  Receipt Date: 20230214
  Transmission Date: 20230418
  Serious: Yes (Other)
  Sender: FDA-Public Use
  Company Number: DE-ALKEM LABORATORIES LIMITED-DE-ALKEM-2022-12711

PATIENT
  Sex: Female

DRUGS (1)
  1. LINEZOLID [Suspect]
     Active Substance: LINEZOLID
     Indication: Staphylococcal infection
     Dosage: 2 DOSAGE FORM, EVERY 1 DAY (FILM-COATED TABLET)
     Route: 048
     Dates: start: 20221001

REACTIONS (3)
  - Renal function test abnormal [Not Recovered/Not Resolved]
  - Dialysis [Unknown]
  - Fatigue [Recovered/Resolved]
